FAERS Safety Report 10233649 (Version 1)
Quarter: 2014Q2

REPORT INFORMATION
  Report Type: Spontaneous
  Country: US (occurrence: US)
  Receive Date: 20140612
  Receipt Date: 20140612
  Transmission Date: 20141212
  Serious: Yes (Other)
  Sender: FDA-Public Use
  Company Number: US-WATSON-2014-12988

PATIENT
  Age: 29 Year
  Sex: Female

DRUGS (1)
  1. HALOPERIDOL (WATSON LABORATORIES) [Suspect]
     Indication: SCHIZOPHRENIA
     Dosage: 15 MG, QPM
     Route: 048
     Dates: start: 201106

REACTIONS (1)
  - Tardive dyskinesia [Recovering/Resolving]
